FAERS Safety Report 8010519-2 (Version None)
Quarter: 2011Q4

REPORT INFORMATION
  Report Type: 
  Country: None (occurrence: None)
  Receive Date: 20111228
  Receipt Date: 20111214
  Transmission Date: 20120403
  Serious: Yes (Hospitalization, Other)
  Sender: FDA-Public Use
  Company Number: PHHY2011CA107453

PATIENT
  Sex: Female

DRUGS (4)
  1. CLOZARIL [Suspect]
     Indication: SCHIZOPHRENIA
     Dosage: 600 MG
     Route: 048
     Dates: start: 20080327
  2. SEROQUEL [Concomitant]
     Dosage: 1000 MG,400 MG LUNCH TIME AND 600 MG Q HS
  3. CELEXA [Concomitant]
     Dosage: 20 MG, QHS
  4. ATROPINE [Concomitant]
     Dosage: 2 DROPS Q HS
     Route: 047

REACTIONS (2)
  - LOWER LIMB FRACTURE [None]
  - FALL [None]
